FAERS Safety Report 19889228 (Version 1)
Quarter: 2021Q3

REPORT INFORMATION
  Report Type: Spontaneous
  Country: FR (occurrence: FR)
  Receive Date: 20210927
  Receipt Date: 20210927
  Transmission Date: 20211014
  Serious: Yes (Other)
  Sender: FDA-Public Use
  Company Number: FR-AVERITAS PHARMA, INC.-2021-270026

PATIENT
  Sex: Male

DRUGS (2)
  1. COVID?19 VACCINE [Concomitant]
     Indication: PRODUCT USED FOR UNKNOWN INDICATION
     Dosage: UNK
     Route: 065
  2. QUTENZA [Suspect]
     Active Substance: CAPSAICIN
     Indication: POST HERPETIC NEURALGIA
     Dosage: 2 DOSAGE FORM
     Route: 003
     Dates: start: 20210901, end: 20210901

REACTIONS (4)
  - Blister [Recovered/Resolved]
  - Burning sensation [Recovered/Resolved]
  - Pain [Recovered/Resolved]
  - Erythema [Recovered/Resolved]

NARRATIVE: CASE EVENT DATE: 20210901
